FAERS Safety Report 16948370 (Version 1)
Quarter: 2019Q4

REPORT INFORMATION
  Report Type: Spontaneous
  Country: US (occurrence: US)
  Receive Date: 20191022
  Receipt Date: 20191022
  Transmission Date: 20200122
  Serious: No
  Sender: FDA-Public Use
  Company Number: US-CELGENEUS-USA-20191006613

PATIENT
  Age: 68 Year
  Sex: Male

DRUGS (1)
  1. OTEZLA [Suspect]
     Active Substance: APREMILAST
     Indication: PSORIATIC ARTHROPATHY
     Dosage: 60 MILLIGRAM
     Route: 048
     Dates: start: 20190829, end: 20191017

REACTIONS (4)
  - Diarrhoea [Not Recovered/Not Resolved]
  - Abdominal pain upper [Not Recovered/Not Resolved]
  - Pharyngeal swelling [Not Recovered/Not Resolved]
  - Migraine [Not Recovered/Not Resolved]

NARRATIVE: CASE EVENT DATE: 20190829
